FAERS Safety Report 11238790 (Version 2)
Quarter: 2015Q3

REPORT INFORMATION
  Report Type: Spontaneous
  Country: US (occurrence: US)
  Receive Date: 20150706
  Receipt Date: 20150710
  Transmission Date: 20151125
  Serious: Yes (Life-Threatening, Hospitalization, Disabling)
  Sender: FDA-Public Use
  Company Number: US-ROCHE-1602349

PATIENT
  Age: 61 Year
  Sex: Female
  Weight: 61.29 kg

DRUGS (11)
  1. AVASTIN [Suspect]
     Active Substance: BEVACIZUMAB
     Indication: LUNG NEOPLASM MALIGNANT
     Route: 042
     Dates: start: 20150310, end: 20150609
  2. CARBOPLATIN. [Concomitant]
     Active Substance: CARBOPLATIN
     Indication: PRODUCT USED FOR UNKNOWN INDICATION
     Route: 042
     Dates: start: 20150310
  3. TAXOL [Concomitant]
     Active Substance: PACLITAXEL
     Indication: PRODUCT USED FOR UNKNOWN INDICATION
     Route: 042
     Dates: start: 20150310
  4. COMPAZINE [Concomitant]
     Active Substance: PROCHLORPERAZINE MALEATE
     Indication: NAUSEA
     Dosage: AS NEEDED
     Route: 065
  5. ALBUTEROL. [Concomitant]
     Active Substance: ALBUTEROL
     Route: 065
  6. ZOFRAN [Concomitant]
     Active Substance: ONDANSETRON HYDROCHLORIDE
     Indication: NAUSEA
     Dosage: AS NEEDED
     Route: 065
  7. SERTRALINE [Concomitant]
     Active Substance: SERTRALINE HYDROCHLORIDE
     Indication: DEPRESSION
     Route: 048
     Dates: start: 20150407
  8. OXYCONTIN [Concomitant]
     Active Substance: OXYCODONE HYDROCHLORIDE
     Indication: MUSCULOSKELETAL PAIN
     Route: 048
     Dates: start: 20140624
  9. COMBIVENT [Concomitant]
     Active Substance: ALBUTEROL SULFATE\IPRATROPIUM BROMIDE
     Dosage: 2 PUFFS
     Route: 065
  10. OXYCODONE [Concomitant]
     Active Substance: OXYCODONE
     Indication: MUSCULOSKELETAL PAIN
     Route: 048
  11. ADVAIR DISKUS [Concomitant]
     Active Substance: FLUTICASONE PROPIONATE\SALMETEROL XINAFOATE
     Dosage: 1 PUFF
     Route: 065

REACTIONS (5)
  - Diarrhoea [Unknown]
  - Posterior reversible encephalopathy syndrome [Recovering/Resolving]
  - Hemiplegia [Not Recovered/Not Resolved]
  - Blood pressure systolic increased [Recovering/Resolving]
  - Dizziness [Unknown]

NARRATIVE: CASE EVENT DATE: 20150628
